FAERS Safety Report 4740464-7 (Version None)
Quarter: 2005Q3

REPORT INFORMATION
  Report Type: 
  Country: None (occurrence: None)
  Receive Date: 20050810
  Receipt Date: 20050726
  Transmission Date: 20060218
  Serious: Yes (Hospitalization)
  Sender: FDA-Public Use
  Company Number: DE-GILEAD-2005-0008570

PATIENT
  Sex: Female
  Weight: 55 kg

DRUGS (2)
  1. VIREAD [Suspect]
  2. VOLTAREN [Concomitant]

REACTIONS (22)
  - ABDOMINAL PAIN [None]
  - ACTIVATED PARTIAL THROMBOPLASTIN TIME PROLONGED [None]
  - ANAEMIA [None]
  - ANAL CANCER [None]
  - ANAL FISTULA [None]
  - ANAL ULCER [None]
  - BLEEDING TIME PROLONGED [None]
  - BLOOD AMYLASE INCREASED [None]
  - BLOOD SODIUM DECREASED [None]
  - BLOOD TRIGLYCERIDES INCREASED [None]
  - BONE MARROW DISORDER [None]
  - CHROMATURIA [None]
  - DYSPNOEA EXERTIONAL [None]
  - GENERAL PHYSICAL HEALTH DETERIORATION [None]
  - HEART RATE INCREASED [None]
  - HEPATIC FAILURE [None]
  - KIDNEY INFECTION [None]
  - LACTIC ACIDOSIS [None]
  - MYCOBACTERIUM AVIUM COMPLEX INFECTION [None]
  - ORAL CANDIDIASIS [None]
  - PANCYTOPENIA [None]
  - RENAL FAILURE [None]
